FAERS Safety Report 8578698-6 (Version None)
Quarter: 2012Q3

REPORT INFORMATION
  Report Type: 
  Country: None (occurrence: None)
  Receive Date: 20120801
  Receipt Date: 20120801
  Transmission Date: 20120928
  Serious: Yes (Life-Threatening)
  Sender: FDA-Public Use
  Company Number: None

PATIENT
  Age: 65 Year
  Sex: Male
  Weight: 124 kg

DRUGS (1)
  1. VANCOMYCIN [Suspect]
     Indication: URINARY TRACT INFECTION STAPHYLOCOCCAL
     Dosage: 1000 MG ONCE IV
     Route: 042
     Dates: start: 20120503, end: 20120503

REACTIONS (6)
  - VOMITING [None]
  - ANGIOEDEMA [None]
  - PALPITATIONS [None]
  - ANAPHYLACTIC REACTION [None]
  - RED MAN SYNDROME [None]
  - ATRIAL FIBRILLATION [None]
